FAERS Safety Report 12303916 (Version 3)
Quarter: 2016Q2

REPORT INFORMATION
  Report Type: Spontaneous
  Country: US (occurrence: US)
  Receive Date: 20160426
  Receipt Date: 20160609
  Transmission Date: 20160815
  Serious: No
  Sender: FDA-Public Use
  Company Number: US-JNJFOC-20160411891

PATIENT
  Age: 17 Year
  Sex: Male

DRUGS (2)
  1. RISPERDAL [Suspect]
     Active Substance: RISPERIDONE
     Indication: AGITATION
     Route: 048
     Dates: start: 20041130, end: 20041213
  2. RISPERDAL [Suspect]
     Active Substance: RISPERIDONE
     Indication: HYPERVENTILATION
     Route: 048
     Dates: start: 20041130, end: 20041213

REACTIONS (4)
  - Breast enlargement [Unknown]
  - Adverse event [Unknown]
  - Product use issue [Unknown]
  - Off label use [Unknown]

NARRATIVE: CASE EVENT DATE: 20041130
